FAERS Safety Report 16739140 (Version 1)
Quarter: 2019Q3

REPORT INFORMATION
  Report Type: Spontaneous
  Country: US (occurrence: US)
  Receive Date: 20190826
  Receipt Date: 20190826
  Transmission Date: 20191005
  Serious: No
  Sender: FDA-Public Use
  Company Number: US-OREXO US, INC.-ORE201807-000085

PATIENT
  Age: 35 Year
  Sex: Male

DRUGS (1)
  1. ZUBSOLV [Suspect]
     Active Substance: BUPRENORPHINE HYDROCHLORIDE\NALOXONE HYDROCHLORIDE
     Indication: DRUG DEPENDENCE
     Dosage: 8 MG, THRICE A DAY
     Route: 060
     Dates: start: 201804, end: 2018

REACTIONS (5)
  - Tachyphrenia [Unknown]
  - Intentional product use issue [Unknown]
  - Wrong technique in product usage process [Unknown]
  - Drug dependence [Unknown]
  - Inappropriate schedule of product administration [Unknown]
